FAERS Safety Report 6149986-8 (Version None)
Quarter: 2009Q2

REPORT INFORMATION
  Report Type: 
  Country: None (occurrence: None)
  Receive Date: 20090409
  Receipt Date: 20090406
  Transmission Date: 20091009
  Serious: Yes (Hospitalization, Other)
  Sender: FDA-Public Use
  Company Number: B0550115A

PATIENT
  Sex: Female

DRUGS (7)
  1. PAXIL [Suspect]
     Indication: DEPRESSION
     Dosage: 20MG PER DAY
     Route: 048
     Dates: start: 20080820, end: 20081208
  2. AMITRIPTYLINE HCL [Suspect]
     Indication: DRUG USE FOR UNKNOWN INDICATION
     Dosage: 10MG THREE TIMES PER DAY
     Route: 048
     Dates: start: 20080820, end: 20081013
  3. AMITRIPTYLINE HCL [Suspect]
     Dosage: 20MG TWICE PER DAY
     Route: 048
     Dates: start: 20081014, end: 20081208
  4. TRYPTANOL [Concomitant]
     Indication: DEPRESSION
     Dosage: 10MG THREE TIMES PER DAY
     Route: 048
     Dates: start: 20080901, end: 20081208
  5. PARIET [Concomitant]
     Indication: DRUG USE FOR UNKNOWN INDICATION
     Route: 048
     Dates: start: 20080801, end: 20081208
  6. ETIZOLAM [Concomitant]
     Dosage: 3MG PER DAY
     Route: 048
     Dates: start: 20080820, end: 20081208
  7. SULPIRIDE [Concomitant]
     Dosage: 150MG PER DAY
     Route: 048
     Dates: start: 20080820, end: 20081208

REACTIONS (4)
  - ANOREXIA [None]
  - HEPATIC FUNCTION ABNORMAL [None]
  - MALAISE [None]
  - VOMITING [None]
